FAERS Safety Report 6037865-6 (Version None)
Quarter: 2009Q1

REPORT INFORMATION
  Report Type: 
  Country: None (occurrence: None)
  Receive Date: 20090113
  Receipt Date: 20090113
  Transmission Date: 20090719
  Serious: Yes (Life-Threatening, Hospitalization)
  Sender: FDA-Public Use
  Company Number: None

PATIENT
  Sex: Female

DRUGS (6)
  1. FEMARA [Suspect]
     Dosage: 2.5 MG PO QD
     Route: 048
     Dates: start: 20070423
  2. TARCEVA [Suspect]
     Dosage: 100 MG PO QD
     Route: 048
     Dates: start: 20070529, end: 20081231
  3. KLONOPIN [Concomitant]
  4. CYMBALTA [Concomitant]
  5. HERBAL SUPPLEMENTS [Concomitant]
  6. CALCIUM [Concomitant]

REACTIONS (6)
  - HAEMOGLOBIN DECREASED [None]
  - LUNG NEOPLASM [None]
  - MARROW HYPERPLASIA [None]
  - METASTASES TO BONE [None]
  - OCULAR ICTERUS [None]
  - THROMBOTIC THROMBOCYTOPENIC PURPURA [None]
